FAERS Safety Report 8791102 (Version 1)
Quarter: 2012Q4

REPORT INFORMATION
  Report Type: Spontaneous
  Country: US (occurrence: None)
  Receive Date: 20120913
  Receipt Date: 20120913
  Transmission Date: 20130627
  Serious: Yes (Other)
  Sender: FDA-Public Use
  Company Number: None

PATIENT
  Sex: Male
  Weight: 77.2 kg

DRUGS (2)
  1. METHOXYAMINE [Suspect]
     Indication: COLORECTAL CANCER
     Dosage: 120 mg q28 days IV
     Route: 042
     Dates: start: 20120803, end: 20120814
  2. TEMOZOLOMIDE [Suspect]
     Dosage: 300 mg daily x5/28 days
     Dates: start: 20120814, end: 20120818

REACTIONS (5)
  - Abdominal pain [None]
  - Post procedural haemorrhage [None]
  - Anuria [None]
  - Gastrointestinal stenosis [None]
  - Urinary retention [None]
